FAERS Safety Report 25367875 (Version 4)
Quarter: 2025Q3

REPORT INFORMATION
  Report Type: Report from Study
  Country: CO (occurrence: CO)
  Receive Date: 20250528
  Receipt Date: 20250915
  Transmission Date: 20251020
  Serious: Yes (Hospitalization, Other)
  Sender: ABBVIE
  Company Number: CO-ABBVIE-6297198

PATIENT
  Age: 70 Year
  Sex: Female
  Weight: 47 kg

DRUGS (1)
  1. VENCLEXTA [Suspect]
     Active Substance: VENETOCLAX
     Indication: Chronic lymphocytic leukaemia
     Dosage: STRENGTH: 100 MG, VENCLEXTA VIAL 100MG
     Route: 048
     Dates: start: 20231114, end: 20250521

REACTIONS (8)
  - Joint injury [Unknown]
  - Vertebral artery aneurysm [Recovered/Resolved]
  - Weight decreased [Recovering/Resolving]
  - Depressed mood [Recovering/Resolving]
  - Hypophagia [Recovering/Resolving]
  - Chronic lymphocytic leukaemia [Unknown]
  - Arthritis infective [Unknown]
  - Knee operation [Unknown]

NARRATIVE: CASE EVENT DATE: 20250101
